FAERS Safety Report 4552915-1 (Version None)
Quarter: 2005Q1

REPORT INFORMATION
  Report Type: 
  Country: None (occurrence: None)
  Receive Date: 20050113
  Receipt Date: 20050107
  Transmission Date: 20050727
  Serious: Yes (Death, Other)
  Sender: FDA-Public Use
  Company Number: 200412886BCC

PATIENT
  Age: 78 Year
  Sex: Female

DRUGS (2)
  1. ASPIRIN [Suspect]
     Indication: CHEST PAIN
     Dosage: ORAL
     Route: 048
     Dates: end: 20040515
  2. ASPIRIN [Suspect]
     Indication: FEELING ABNORMAL
     Dosage: ORAL
     Route: 048
     Dates: end: 20040515

REACTIONS (3)
  - FALL [None]
  - MYOCARDIAL INFARCTION [None]
  - SYNCOPE [None]
